FAERS Safety Report 7670967-7 (Version None)
Quarter: 2011Q3

REPORT INFORMATION
  Report Type: 
  Country: None (occurrence: None)
  Receive Date: 20110809
  Receipt Date: 20110804
  Transmission Date: 20111222
  Serious: Yes (Other)
  Sender: FDA-Public Use
  Company Number: US-PFIZER INC-2011077482

PATIENT
  Sex: Female
  Weight: 107.48 kg

DRUGS (5)
  1. ALPRAZOLAM [Interacting]
     Dosage: 0.5 MG, 3X/DAY
     Route: 048
  2. EMSAM [Interacting]
     Indication: DEPRESSION
     Dosage: 12 MG, UNK
     Route: 062
  3. OMEPRAZOLE [Interacting]
     Indication: GASTROOESOPHAGEAL REFLUX DISEASE
     Dosage: 20 MG, 2X/DAY
     Route: 048
     Dates: start: 20040101
  4. ALPRAZOLAM [Suspect]
     Indication: ANXIETY
     Dosage: UNK
     Route: 048
     Dates: start: 20101101
  5. ALPRAZOLAM [Interacting]
     Dosage: 0.5 MG, 4X/DAY
     Route: 048
     Dates: start: 20110201

REACTIONS (14)
  - DEPRESSED MOOD [None]
  - SOMNOLENCE [None]
  - CRYING [None]
  - IRRITABILITY [None]
  - WEIGHT INCREASED [None]
  - DRUG INTERACTION [None]
  - FEELING ABNORMAL [None]
  - WITHDRAWAL SYNDROME [None]
  - DRUG INEFFECTIVE [None]
  - FATIGUE [None]
  - SEDATION [None]
  - DEPRESSION [None]
  - ANXIETY [None]
  - COORDINATION ABNORMAL [None]
